FAERS Safety Report 24594013 (Version 1)
Quarter: 2024Q4

REPORT INFORMATION
  Report Type: Spontaneous
  Country: DE (occurrence: DE)
  Receive Date: 20241108
  Receipt Date: 20241108
  Transmission Date: 20250115
  Serious: Yes (Other)
  Sender: ELI LILLY AND COMPANY
  Company Number: DE-ELI_LILLY_AND_COMPANY-DE202410021064

PATIENT
  Sex: Male

DRUGS (2)
  1. OLUMIANT [Suspect]
     Active Substance: BARICITINIB
     Indication: Atopy
     Dosage: 4 MG, DAILY
     Route: 048
     Dates: start: 20211121
  2. OLUMIANT [Suspect]
     Active Substance: BARICITINIB
     Indication: Colitis ulcerative

REACTIONS (3)
  - Testis cancer [Not Recovered/Not Resolved]
  - Renal disorder [Unknown]
  - Urinary tract disorder [Unknown]

NARRATIVE: CASE EVENT DATE: 20241024
